FAERS Safety Report 24588911 (Version 5)
Quarter: 2025Q1

REPORT INFORMATION
  Report Type: Spontaneous
  Country: US (occurrence: US)
  Receive Date: 20241107
  Receipt Date: 20250109
  Transmission Date: 20250408
  Serious: No
  Sender: PFIZER
  Company Number: US-PFIZER INC-202400292224

PATIENT
  Age: 13 Year
  Sex: Male
  Weight: 37.551 kg

DRUGS (3)
  1. GENOTROPIN [Suspect]
     Active Substance: SOMATROPIN
     Indication: Coeliac disease
     Dosage: DOSE IS 1.3, SO ALTERNATES BETWEEN 1.2 AND 1.4 EACH DAY FOR DOSE OF 1.3
     Route: 030
     Dates: start: 202410
  2. GENOTROPIN [Suspect]
     Active Substance: SOMATROPIN
     Indication: Hypothalamo-pituitary disorder
  3. GENOTROPIN [Suspect]
     Active Substance: SOMATROPIN
     Indication: Growth hormone deficiency

REACTIONS (5)
  - Drug dose omission by device [Unknown]
  - Device leakage [Unknown]
  - Device issue [Unknown]
  - Poor quality device used [Unknown]
  - Incorrect route of product administration [Unknown]

NARRATIVE: CASE EVENT DATE: 20241001
